FAERS Safety Report 5142539-X (Version None)
Quarter: 2006Q4

REPORT INFORMATION
  Report Type: 
  Country: None (occurrence: None)
  Receive Date: 20061027
  Receipt Date: 20061017
  Transmission Date: 20070319
  Serious: Yes (Other)
  Sender: FDA-Public Use
  Company Number: 2006105370

PATIENT
  Age: 56 Year
  Sex: Female
  Weight: 109.3169 kg

DRUGS (12)
  1. LYRICA [Suspect]
     Indication: FIBROMYALGIA
     Dosage: 100 MG (50 MG, 2 IN 1 D), ORAL
     Route: 048
     Dates: start: 20060718, end: 20060825
  2. LYRICA [Suspect]
     Indication: HEADACHE
     Dosage: 100 MG (50 MG, 2 IN 1 D), ORAL
     Route: 048
     Dates: start: 20060718, end: 20060825
  3. INSULIN            (INSULIN) [Concomitant]
  4. REGLAN [Concomitant]
  5. FUROSEMIDE [Concomitant]
  6. ADVAIR DISKUS 100/50 [Concomitant]
  7. PROTONIX [Concomitant]
  8. VALSARTAN [Concomitant]
  9. LIPITOR [Concomitant]
  10. LINSEED OIL                            (LINSEED OIL) [Concomitant]
  11. ASPIRIN [Concomitant]
  12. MULTVITAMINS                          (MULTIVITAMINS) [Concomitant]

REACTIONS (5)
  - BLOOD UREA INCREASED [None]
  - CONTUSION [None]
  - DRUG EFFECT DECREASED [None]
  - HAEMATOCRIT DECREASED [None]
  - HAEMOGLOBIN DECREASED [None]
